FAERS Safety Report 23159114 (Version 1)
Quarter: 2023Q4

REPORT INFORMATION
  Report Type: Spontaneous
  Country: US (occurrence: US)
  Receive Date: 20231108
  Receipt Date: 20231108
  Transmission Date: 20240109
  Serious: Yes (Life-Threatening, Hospitalization, Other)
  Sender: FDA-Public Use
  Company Number: US-LEADINGPHARMA-US-2023LEALIT00314

PATIENT
  Age: 56 Year
  Sex: Female

DRUGS (4)
  1. FUROSEMIDE [Suspect]
     Active Substance: FUROSEMIDE
     Indication: Pulmonary arterial hypertension
     Route: 065
  2. FUROSEMIDE [Suspect]
     Active Substance: FUROSEMIDE
     Indication: Right ventricular failure
  3. TREPROSTINIL [Suspect]
     Active Substance: TREPROSTINIL
     Indication: Pulmonary arterial hypertension
     Route: 065
  4. TREPROSTINIL [Suspect]
     Active Substance: TREPROSTINIL
     Indication: Right ventricular failure

REACTIONS (2)
  - Pulmonary oedema [Not Recovered/Not Resolved]
  - Respiratory failure [Not Recovered/Not Resolved]
